FAERS Safety Report 24757955 (Version 2)
Quarter: 2025Q1

REPORT INFORMATION
  Report Type: Spontaneous
  Country: SI (occurrence: SI)
  Receive Date: 20241220
  Receipt Date: 20250102
  Transmission Date: 20250409
  Serious: Yes (Other)
  Sender: OCTAPHARMA
  Company Number: SI-OCTA-2024000176

PATIENT
  Age: 27 Year
  Sex: Female

DRUGS (2)
  1. OCTAGAM IMMUNE GLOBULIN (HUMAN) [Suspect]
     Active Substance: HUMAN IMMUNOGLOBULIN G
     Indication: Thrombocytopenia
     Route: 042
     Dates: start: 20241206, end: 20241206
  2. PRIVIGEN [Suspect]
     Active Substance: HUMAN IMMUNOGLOBULIN G
     Indication: Thrombocytopenia
     Dates: start: 20241205, end: 20241205

REACTIONS (4)
  - Respiratory distress [Unknown]
  - Transfusion reaction [Unknown]
  - Transfusion-related acute lung injury [Unknown]
  - Pallor [Unknown]

NARRATIVE: CASE EVENT DATE: 20241207
